FAERS Safety Report 13918066 (Version 1)
Quarter: 2017Q3

REPORT INFORMATION
  Report Type: Spontaneous
  Country: ES (occurrence: ES)
  Receive Date: 20170829
  Receipt Date: 20170829
  Transmission Date: 20171127
  Serious: Yes (Other)
  Sender: FDA-Public Use
  Company Number: PHHY2017ES124993

PATIENT
  Age: 25 Year
  Sex: Male

DRUGS (5)
  1. OMEPRAZOLE. [Suspect]
     Active Substance: OMEPRAZOLE
     Indication: GASTROINTESTINAL DISORDER
     Dosage: 20 MG, BID
     Route: 065
  2. DIMETHYL FUMARATE [Suspect]
     Active Substance: DIMETHYL FUMARATE
     Indication: RELAPSING-REMITTING MULTIPLE SCLEROSIS
     Dosage: 120 MG, QD
     Route: 065
     Dates: start: 201510
  3. DIMETHYL FUMARATE [Suspect]
     Active Substance: DIMETHYL FUMARATE
     Dosage: 120 MG, BID
     Route: 065
     Dates: start: 201510
  4. DIMETHYL FUMARATE [Suspect]
     Active Substance: DIMETHYL FUMARATE
     Dosage: 360 MG, BID
     Route: 065
     Dates: start: 201510
  5. DIMETHYL FUMARATE [Suspect]
     Active Substance: DIMETHYL FUMARATE
     Dosage: 240 MG, BID
     Route: 065
     Dates: start: 201510

REACTIONS (2)
  - Leukocytosis [Recovered/Resolved]
  - Eosinophilia [Recovered/Resolved]
